FAERS Safety Report 8952710 (Version 1)
Quarter: 2012Q4

REPORT INFORMATION
  Report Type: Report from Study
  Country: CA (occurrence: CA)
  Receive Date: 20121205
  Receipt Date: 20121205
  Transmission Date: 20130627
  Serious: Yes (Disabling)
  Sender: FDA-Public Use
  Company Number: CA-US-EMD SERONO, INC.-7179267

PATIENT
  Sex: Female

DRUGS (2)
  1. REBIF [Suspect]
     Indication: MULTIPLE SCLEROSIS
     Route: 058
     Dates: start: 20021117, end: 2012
  2. REBIF [Suspect]
     Dates: start: 201209

REACTIONS (3)
  - Cerebrovascular accident [Recovered/Resolved with Sequelae]
  - Multiple sclerosis relapse [Recovering/Resolving]
  - Influenza like illness [Unknown]
